FAERS Safety Report 4674006-1 (Version None)
Quarter: 2005Q2

REPORT INFORMATION
  Report Type: 
  Country: None (occurrence: None)
  Receive Date: 20050525
  Receipt Date: 20050512
  Transmission Date: 20051028
  Serious: Yes (Hospitalization, Other)
  Sender: FDA-Public Use
  Company Number: 2005-04-0028

PATIENT
  Age: 40 Year
  Sex: Male

DRUGS (7)
  1. CLARITIN REDITABS [Suspect]
     Indication: RHINITIS ALLERGIC
     Dosage: 10 MG ORAL
     Route: 048
     Dates: start: 20050321, end: 20050330
  2. ALLEGRA [Suspect]
     Indication: RHINITIS ALLERGIC
     Dosage: SEE IMAGE
     Route: 048
     Dates: start: 20010301, end: 20040301
  3. ALLEGRA [Suspect]
     Indication: RHINITIS ALLERGIC
     Dosage: SEE IMAGE
     Route: 048
     Dates: start: 20050309, end: 20050320
  4. ALLEGRA [Suspect]
     Indication: RHINITIS ALLERGIC
     Dosage: SEE IMAGE
     Route: 048
     Dates: start: 20050309, end: 20050330
  5. ALLEGRA [Suspect]
     Indication: RHINITIS ALLERGIC
     Dosage: SEE IMAGE
     Route: 048
     Dates: start: 20050330, end: 20050330
  6. LIVOSTIN [Concomitant]
  7. BECLOMETHASONE DIPROPIONATE [Concomitant]

REACTIONS (5)
  - CONVULSION [None]
  - ELECTROCARDIOGRAM Q WAVES [None]
  - EPILEPSY [None]
  - LOSS OF CONSCIOUSNESS [None]
  - MALAISE [None]
